FAERS Safety Report 4511076-5 (Version None)
Quarter: 2004Q4

REPORT INFORMATION
  Report Type: 
  Country: None (occurrence: None)
  Receive Date: 20041015
  Receipt Date: 20040211
  Transmission Date: 20050328
  Serious: Yes (Other)
  Sender: FDA-Public Use
  Company Number: 2004009415

PATIENT
  Sex: Female
  Weight: 52.1637 kg

DRUGS (4)
  1. NEURONTIN [Suspect]
     Indication: PAIN
     Dosage: 600 MG (BID), ORAL
     Route: 048
     Dates: start: 20040201, end: 20040201
  2. ALL OTHER THERAPEUTIC (ALL OTHER THERAPEUTIC PRODUCTS) [Concomitant]
  3. ALPRAZOLAM [Concomitant]
  4. CONJUGATED ESTROGENS [Concomitant]

REACTIONS (3)
  - CONVULSION [None]
  - NAUSEA [None]
  - PAIN [None]
